FAERS Safety Report 4315572-5 (Version None)
Quarter: 2004Q1

REPORT INFORMATION
  Report Type: 
  Country: None (occurrence: None)
  Receive Date: 20040311
  Receipt Date: 20040203
  Transmission Date: 20041129
  Serious: Yes (Hospitalization, Other)
  Sender: FDA-Public Use
  Company Number: PHHO2004BE01807

PATIENT
  Age: 62 Year
  Sex: Male
  Weight: 100 kg

DRUGS (5)
  1. NEORAL [Suspect]
     Indication: LIVER TRANSPLANT
     Dosage: 50 MG / DAY
     Route: 048
     Dates: start: 19990419, end: 20030911
  2. AMLOR [Concomitant]
  3. EMCONCOR [Concomitant]
  4. PANTOZOL [Concomitant]
  5. LIPANTHYL [Concomitant]

REACTIONS (3)
  - DIABETES MELLITUS INSULIN-DEPENDENT [None]
  - HYPERGLYCAEMIA [None]
  - RENAL FAILURE [None]
